FAERS Safety Report 7431893-1 (Version None)
Quarter: 2011Q2

REPORT INFORMATION
  Report Type: 
  Country: None (occurrence: None)
  Receive Date: 20110422
  Receipt Date: 20110415
  Transmission Date: 20111010
  Serious: Yes (Hospitalization, Other)
  Sender: FDA-Public Use
  Company Number: US-JNJFOC-20100806920

PATIENT
  Sex: Female

DRUGS (12)
  1. PREDNISONE [Suspect]
     Indication: SARCOIDOSIS
     Route: 048
  2. LEVAQUIN [Suspect]
     Indication: LUNG DISORDER
     Route: 048
  3. LEVAQUIN [Suspect]
     Route: 048
  4. PREDNISONE [Suspect]
     Indication: RESPIRATORY DISORDER
     Route: 048
  5. TEQUIN [Suspect]
     Indication: RESPIRATORY TRACT CONGESTION
     Route: 048
  6. LEVAQUIN [Suspect]
     Indication: HERNIA
     Route: 048
  7. LEVAQUIN [Suspect]
     Route: 048
  8. LEVAQUIN [Suspect]
     Route: 048
  9. PREDNISONE [Suspect]
     Route: 048
  10. LEVAQUIN [Suspect]
     Indication: UPPER RESPIRATORY TRACT INFECTION
     Route: 048
  11. STEROIDS NOS [Suspect]
     Indication: PRODUCT USED FOR UNKNOWN INDICATION
     Route: 065
  12. PREDNISONE [Suspect]
     Route: 048

REACTIONS (7)
  - BURSITIS [None]
  - TENDON RUPTURE [None]
  - ROTATOR CUFF SYNDROME [None]
  - MENISCUS LESION [None]
  - PRURITUS [None]
  - URTICARIA [None]
  - LUNG NEOPLASM MALIGNANT [None]
